FAERS Safety Report 9448541 (Version 2)
Quarter: 2013Q4

REPORT INFORMATION
  Report Type: Report from Study
  Country: BE (occurrence: BE)
  Receive Date: 20130808
  Receipt Date: 20131223
  Transmission Date: 20140711
  Serious: Yes (Death, Hospitalization, Other)
  Sender: FDA-Public Use
  Company Number: BE-GLAXOSMITHKLINE-B0908246A

PATIENT
  Age: 80 Year
  Sex: Male
  Weight: 66 kg

DRUGS (21)
  1. OFATUMUMAB [Suspect]
     Indication: CHRONIC LYMPHOCYTIC LEUKAEMIA
     Dosage: 1000MG CYCLIC
     Route: 042
     Dates: start: 20130430
  2. INVESTIGATIONAL DRUG [Suspect]
     Indication: CHRONIC LYMPHOCYTIC LEUKAEMIA
     Dosage: 150MG PER DAY
     Route: 048
     Dates: start: 20130430
  3. MYLAN [Concomitant]
     Dates: start: 201304
  4. BURINEX [Concomitant]
  5. LAXOBERON [Concomitant]
  6. ZOVIRAX [Concomitant]
  7. DAFALGAN [Concomitant]
  8. ACICLOVIR [Concomitant]
     Dates: start: 201304
  9. EMCONCOR [Concomitant]
  10. LANOXIN [Concomitant]
     Dates: start: 20100312
  11. LOSARTAN [Concomitant]
     Dates: start: 20101013
  12. MARCOUMAR [Concomitant]
  13. AUGMENTIN [Concomitant]
     Dates: start: 20130517, end: 20130520
  14. PARACODINE [Concomitant]
     Dates: start: 20130408
  15. MOVICOL [Concomitant]
     Dates: start: 20130422
  16. LAXOBERON [Concomitant]
     Dates: start: 20130422
  17. ZOVIRAX [Concomitant]
     Dates: start: 20130408
  18. PANTOPRAZOLE SODIUM SESQUIHYDRATE [Concomitant]
     Dates: start: 20130422
  19. ZYLORIC [Concomitant]
     Dates: start: 20100308
  20. MOTILIUM [Concomitant]
     Dates: start: 20130603, end: 20130610
  21. DAFALGAN [Concomitant]
     Dates: start: 20130608

REACTIONS (2)
  - Pneumocystis jirovecii pneumonia [Recovered/Resolved]
  - Candida sepsis [Fatal]
